FAERS Safety Report 16897950 (Version 1)
Quarter: 2019Q4

REPORT INFORMATION
  Report Type: Spontaneous
  Country: US (occurrence: US)
  Receive Date: 20190815
  Receipt Date: 20190815
  Transmission Date: 20200122
  Serious: No
  Sender: FDA-Public Use
  Company Number: None

PATIENT
  Age: 49 Year
  Sex: Female

DRUGS (1)
  1. COPAXONE [Suspect]
     Active Substance: GLATIRAMER ACETATE
     Dates: start: 20150101

REACTIONS (4)
  - Fatigue [None]
  - Muscle injury [None]
  - Skin disorder [None]
  - Product substitution issue [None]

NARRATIVE: CASE EVENT DATE: 20190815
